FAERS Safety Report 16758917 (Version 1)
Quarter: 2019Q3

REPORT INFORMATION
  Report Type: Spontaneous
  Country: GB (occurrence: GB)
  Receive Date: 20190830
  Receipt Date: 20190830
  Transmission Date: 20191005
  Serious: Yes (Life-Threatening, Hospitalization, Other)
  Sender: FDA-Public Use
  Company Number: GB-ACCORD-153214

PATIENT
  Age: 24 Year
  Sex: Male

DRUGS (4)
  1. MIRTAZAPINE. [Concomitant]
     Active Substance: MIRTAZAPINE
  2. CLOZAPINE. [Suspect]
     Active Substance: CLOZAPINE
     Indication: SCHIZOPHRENIA
     Dosage: TITRATING AFTER INITIATION, 125 MG AM AND 200 MG NOCTE AT TIME OF ADMISSION
     Route: 048
     Dates: start: 20190721, end: 20190812
  3. QUETIAPINE/QUETIAPINE FUMARATE [Concomitant]
  4. VENLAFAXINE/VENLAFAXINE HYDROCHLORIDE [Concomitant]

REACTIONS (2)
  - Pericarditis [Recovering/Resolving]
  - Myocarditis [Recovering/Resolving]
